FAERS Safety Report 7747541-7 (Version None)
Quarter: 2011Q3

REPORT INFORMATION
  Report Type: 
  Country: None (occurrence: None)
  Receive Date: 20110913
  Receipt Date: 20110907
  Transmission Date: 20111222
  Serious: No
  Sender: FDA-Public Use
  Company Number: US-BAYER-2011-084639

PATIENT

DRUGS (3)
  1. TOBRAMYCIN [Concomitant]
     Route: 048
  2. CIPROFLOXACIN [Suspect]
     Route: 048
  3. NEOMYCIN [Concomitant]
     Route: 061

REACTIONS (1)
  - RASH [None]
